FAERS Safety Report 4653523-4 (Version None)
Quarter: 2005Q2

REPORT INFORMATION
  Report Type: 
  Country: None (occurrence: None)
  Receive Date: 20050503
  Receipt Date: 20050419
  Transmission Date: 20051028
  Serious: Yes (Other)
  Sender: FDA-Public Use
  Company Number: A03200501153

PATIENT
  Age: 55 Year
  Sex: Female
  Weight: 156.91 kg

DRUGS (17)
  1. PLAVIX [Suspect]
     Indication: STENT PLACEMENT
     Dosage: 75 MG QD - ORAL
     Route: 048
     Dates: start: 20040701, end: 20050419
  2. ASPIRIN [Suspect]
     Indication: STENT PLACEMENT
     Dosage: 325 MG QD - ORAL
     Route: 048
     Dates: start: 20040701
  3. INSULIN [Concomitant]
  4. SIMVASTATIN [Concomitant]
  5. CHROMAGEN FORTE [Concomitant]
  6. POTASSIUM CHLORIDE [Concomitant]
  7. PIOGLITAZONE HYDROCHLORIDE [Concomitant]
  8. CITALOPRAM HYDROBROMIDE [Concomitant]
  9. CLONAZEPAM [Concomitant]
  10. FUROSEMIDE [Concomitant]
  11. LEVOTHYROXINE SODIUM [Concomitant]
  12. ENALAPRIL MALEATE [Concomitant]
  13. RISPERIDONE [Concomitant]
  14. BENZATROPINE MESILATE [Concomitant]
  15. PARACETAMOL [Concomitant]
  16. COSOPT [Concomitant]
  17. LATANOPROST [Concomitant]

REACTIONS (2)
  - BLINDNESS UNILATERAL [None]
  - RETINAL HAEMORRHAGE [None]
